FAERS Safety Report 8024391-8 (Version None)
Quarter: 2012Q1

REPORT INFORMATION
  Report Type: 
  Country: None (occurrence: None)
  Receive Date: 20120105
  Receipt Date: 20120105
  Transmission Date: 20120608
  Serious: Yes (Life-Threatening, Disabling)
  Sender: FDA-Public Use
  Company Number: None

PATIENT
  Sex: Female
  Weight: 77.4 kg

DRUGS (1)
  1. LEVOFLOXACIN [Suspect]
     Indication: URINARY TRACT INFECTION
     Dosage: 500
     Route: 042
     Dates: start: 20111215, end: 20111215

REACTIONS (5)
  - PRURITUS [None]
  - DYSPNOEA [None]
  - LOCAL SWELLING [None]
  - STRIDOR [None]
  - ERYTHEMA [None]
